FAERS Safety Report 5989895-8 (Version None)
Quarter: 2008Q4

REPORT INFORMATION
  Report Type: 
  Country: None (occurrence: None)
  Receive Date: 20081209
  Receipt Date: 20081203
  Transmission Date: 20090506
  Serious: Yes (Life-Threatening, Hospitalization, Disabling)
  Sender: FDA-Public Use
  Company Number: 2008JP001253

PATIENT
  Age: 36 Year
  Sex: Female
  Weight: 61 kg

DRUGS (17)
  1. TACROLIMUS [Suspect]
     Indication: LUPUS NEPHRITIS
     Dosage: 1 MG, /D, ORAL, 1.5 MG, /D, ORAL
     Route: 048
     Dates: start: 20070623, end: 20070824
  2. TACROLIMUS [Suspect]
     Indication: LUPUS NEPHRITIS
     Dosage: 1 MG, /D, ORAL, 1.5 MG, /D, ORAL
     Route: 048
     Dates: start: 20070825, end: 20080103
  3. VP-16(ETOPOSIDE) FORMULATION UNKNOWN [Suspect]
     Indication: HISTIOCYTOSIS HAEMATOPHAGIC
  4. PREDNISOLONE TAB [Concomitant]
  5. BUFFERIN TABLET [Concomitant]
  6. ALFAROL (ALFACALCIDOL) CAPSULE [Concomitant]
  7. PARIET (RABEPRAZOLE SODIUM) TABLET [Concomitant]
  8. LOXONIN (LOXOPROFEN SODIUM) TABLET [Concomitant]
  9. OPALMON (LIMAPROST) TABLET [Concomitant]
  10. CINAL (ASCORBIC ACID, CALCIUM PANTOTHENATE) TABLET [Concomitant]
  11. LOSARTAN POTASSIUM [Concomitant]
  12. LIPITOR [Concomitant]
  13. MAGLAX (MAGNESIUM OXIDE) TABLET [Concomitant]
  14. BONALON (ALENDRONIC ACID) TABLET [Concomitant]
  15. MOHRUS (KETOPROFEN) TAPE [Concomitant]
  16. SELBEX (TEPRENONE) CAPSULE [Concomitant]
  17. ISODINE (POVIDONE-IODINE) [Concomitant]

REACTIONS (8)
  - CELLULITIS [None]
  - DYSPNOEA [None]
  - ENTEROCOCCAL BACTERAEMIA [None]
  - HEPATIC ENCEPHALOPATHY [None]
  - HISTIOCYTOSIS HAEMATOPHAGIC [None]
  - LIVER DISORDER [None]
  - RENAL DISORDER [None]
  - STAPHYLOCOCCAL BACTERAEMIA [None]
